FAERS Safety Report 6835194-1 (Version None)
Quarter: 2010Q3

REPORT INFORMATION
  Report Type: 
  Country: None (occurrence: None)
  Receive Date: 20100713
  Receipt Date: 20100602
  Transmission Date: 20110219
  Serious: No
  Sender: FDA-Public Use
  Company Number: 2010BI003701

PATIENT
  Sex: Female

DRUGS (2)
  1. TYSABRI [Suspect]
     Indication: MULTIPLE SCLEROSIS
     Route: 042
     Dates: start: 20081208, end: 20090806
  2. TYSABRI [Suspect]
     Route: 042
     Dates: start: 20091008

REACTIONS (3)
  - MOTOR DYSFUNCTION [None]
  - MULTIPLE SCLEROSIS [None]
  - PAIN [None]
